FAERS Safety Report 15890527 (Version 4)
Quarter: 2019Q3

REPORT INFORMATION
  Report Type: Report from Study
  Country: None (occurrence: US)
  Receive Date: 20190130
  Receipt Date: 20190923
  Transmission Date: 20191004
  Serious: Yes (Hospitalization, Other)
  Sender: FDA-Public Use
  Company Number: US-ABBVIE-19K-163-2641337-00

PATIENT
  Age: 23 Year
  Sex: Male

DRUGS (2)
  1. HUMIRA [Suspect]
     Active Substance: ADALIMUMAB
     Indication: CROHN^S DISEASE
     Route: 058
     Dates: start: 20180924, end: 2018
  2. HUMIRA [Suspect]
     Active Substance: ADALIMUMAB
     Route: 058

REACTIONS (15)
  - Increased appetite [Unknown]
  - Cough [Recovered/Resolved]
  - Weight increased [Unknown]
  - Purulent discharge [Unknown]
  - Abdominal pain [Not Recovered/Not Resolved]
  - Diarrhoea [Not Recovered/Not Resolved]
  - Loss of personal independence in daily activities [Recovering/Resolving]
  - Post procedural haemorrhage [Not Recovered/Not Resolved]
  - Pilonidal cyst [Unknown]
  - Eructation [Not Recovered/Not Resolved]
  - Gastroenteritis viral [Unknown]
  - Post procedural discharge [Unknown]
  - Intentional product misuse [Unknown]
  - Cognitive disorder [Recovering/Resolving]
  - Complication associated with device [Not Recovered/Not Resolved]

NARRATIVE: CASE EVENT DATE: 20180924
